FAERS Safety Report 10010340 (Version 1)
Quarter: 2014Q1

REPORT INFORMATION
  Report Type: Spontaneous
  Country: US (occurrence: US)
  Receive Date: 20140314
  Receipt Date: 20140314
  Transmission Date: 20141002
  Serious: No
  Sender: FDA-Public Use
  Company Number: US-009507513-1403USA003035

PATIENT
  Age: 53 Year
  Sex: Female

DRUGS (4)
  1. REBETOL [Suspect]
     Indication: HEPATIC CIRRHOSIS
     Route: 048
  2. REBETOL [Suspect]
     Indication: HEPATITIS C
  3. PEGINTRON [Suspect]
     Indication: HEPATITIS C
  4. PEGINTRON [Suspect]
     Indication: HEPATIC CIRRHOSIS

REACTIONS (1)
  - No therapeutic response [Unknown]
